FAERS Safety Report 8030083-1 (Version None)
Quarter: 2012Q1

REPORT INFORMATION
  Report Type: 
  Country: None (occurrence: None)
  Receive Date: 20120106
  Receipt Date: 20120106
  Transmission Date: 20120608
  Serious: No
  Sender: FDA-Public Use
  Company Number: None

PATIENT
  Age: 32 Year
  Sex: Female
  Weight: 63.05 kg

DRUGS (1)
  1. CHORIONIC GONADOTROPIN [Suspect]
     Indication: WEIGHT CONTROL
     Dosage: 10-20 DROPS 3 X DAY SUBLINGUAL
     Route: 060
     Dates: start: 20110501, end: 20110610

REACTIONS (2)
  - ALOPECIA [None]
  - ARRHYTHMIA [None]
